FAERS Safety Report 6847678-0 (Version None)
Quarter: 2010Q3

REPORT INFORMATION
  Report Type: 
  Country: None (occurrence: None)
  Receive Date: 20100716
  Receipt Date: 20100706
  Transmission Date: 20110219
  Serious: Yes (Hospitalization)
  Sender: FDA-Public Use
  Company Number: PHHY2010NL44058

PATIENT
  Sex: Male

DRUGS (23)
  1. ZOMETA [Suspect]
     Dosage: UNK
     Dates: start: 20090608
  2. ZOMETA [Suspect]
     Dosage: UNK
     Dates: start: 20090629
  3. ZOMETA [Suspect]
     Dosage: UNK
     Dates: start: 20090720
  4. ZOMETA [Suspect]
     Dosage: UNK
     Dates: start: 20090817
  5. ZOMETA [Suspect]
     Dosage: UNK
     Dates: start: 20090917
  6. ZOMETA [Suspect]
     Dosage: UNK
     Dates: start: 20091009
  7. ZOMETA [Suspect]
     Dosage: UNK
     Dates: start: 20091029
  8. ZOMETA [Suspect]
     Dosage: UNK
     Dates: start: 20091119
  9. ZOMETA [Suspect]
     Dosage: UNK
     Dates: start: 20091210
  10. ZOMETA [Suspect]
     Dosage: UNK
     Dates: start: 20091228
  11. ZOMETA [Suspect]
     Dosage: UNK
     Dates: start: 20100121
  12. ZOMETA [Suspect]
     Dosage: UNK
     Dates: start: 20100210
  13. ZOMETA [Suspect]
     Dosage: UNK
     Dates: start: 20100302
  14. ZOMETA [Suspect]
     Dosage: UNK
     Dates: start: 20100324
  15. ZOMETA [Suspect]
     Dosage: UNK
     Dates: start: 20100414
  16. ZOMETA [Suspect]
     Dosage: UNK
     Dates: start: 20100504
  17. ZOMETA [Suspect]
     Dosage: UNK
     Dates: start: 20100526
  18. ZOMETA [Suspect]
     Dosage: UNK
     Dates: start: 20100616
  19. ZOMETA [Suspect]
     Dosage: UNK
     Dates: start: 20100705
  20. ZOLADEX [Concomitant]
  21. OXAZEPAM [Concomitant]
  22. METOCLOPRAMIDE [Concomitant]
     Dosage: UNK
  23. ACETAMINOPHEN [Concomitant]
     Dosage: UNK

REACTIONS (8)
  - DIPLOPIA [None]
  - DYSGEUSIA [None]
  - HYPOTHALAMO-PITUITARY DISORDER [None]
  - MALAISE [None]
  - METASTASES TO BONE [None]
  - NAUSEA [None]
  - VOMITING [None]
  - WEIGHT DECREASED [None]
